FAERS Safety Report 12171846 (Version 1)
Quarter: 2016Q1

REPORT INFORMATION
  Report Type: Spontaneous
  Country: US (occurrence: US)
  Receive Date: 20160311
  Receipt Date: 20160311
  Transmission Date: 20160526
  Serious: Yes (Congenital Anomaly)
  Sender: FDA-Public Use
  Company Number: US-PERRIGO-16US013748

PATIENT

DRUGS (3)
  1. INDOMETHACIN. [Suspect]
     Active Substance: INDOMETHACIN
     Dosage: 50 MG, QID
     Route: 064
  2. INDOMETHACIN. [Suspect]
     Active Substance: INDOMETHACIN
     Dosage: 25 MG, QID
     Route: 064
  3. INDOMETHACIN. [Suspect]
     Active Substance: INDOMETHACIN
     Indication: SHORTENED CERVIX
     Dosage: 100 MG, SINGLE
     Route: 064

REACTIONS (2)
  - Ductus arteriosus stenosis foetal [Unknown]
  - Foetal exposure during pregnancy [Unknown]
